FAERS Safety Report 5525874-2 (Version None)
Quarter: 2007Q4

REPORT INFORMATION
  Report Type: 
  Country: None (occurrence: None)
  Receive Date: 20071126
  Receipt Date: 20071108
  Transmission Date: 20080405
  Serious: Yes (Hospitalization, Other)
  Sender: FDA-Public Use
  Company Number: GB-RANBAXY-2007RR-11379

PATIENT

DRUGS (8)
  1. IBUPROFEN [Suspect]
     Indication: BACK PAIN
     Dosage: UNK
     Route: 048
     Dates: start: 20070501, end: 20070603
  2. DISPERSIBLE ASPIRIN 75MG TABLETS BP [Concomitant]
     Dosage: 75 MG, QD
     Route: 048
  3. ATORVASTATIN CALCIUM [Concomitant]
     Dosage: 10 MG, QD
     Route: 048
  4. FELODIPINE [Concomitant]
     Indication: HYPERTENSION
     Dosage: 5 MG, QD
  5. HYDROXYCARBAMIDE [Concomitant]
     Indication: MYELOFIBROSIS
     Dosage: 1 G, QD
  6. METFORMIN 500MG TABLETS [Concomitant]
     Dosage: 500 MG, TID
     Route: 048
  7. TAMSULOSIN HCL [Concomitant]
     Indication: PROSTATIC DISORDER
     Dosage: 400 UG, QD
  8. LEVOTHYROXINE SODIUM [Concomitant]
     Dosage: 100 UG, QD
     Route: 048

REACTIONS (5)
  - HEADACHE [None]
  - LEUKOCYTOSIS [None]
  - MENINGITIS [None]
  - PROTEIN TOTAL INCREASED [None]
  - VOMITING [None]
